FAERS Safety Report 8704871 (Version 3)
Quarter: 2012Q4

REPORT INFORMATION
  Report Type: 
  Country: DK (occurrence: DK)
  Receive Date: 20120803
  Receipt Date: 20121005
  Transmission Date: 20130627
  Serious: Yes (Hospitalization, Other)
  Sender: FDA-Public Use
  Company Number: DK-ROCHE-1091854

PATIENT
  Age: 67 Year
  Sex: Male

DRUGS (12)
  1. CELLCEPT [Suspect]
     Indication: PROPHYLAXIS AGAINST TRANSPLANT REJECTION
     Route: 048
     Dates: start: 20061106
  2. SANDIMMUN NEORAL [Suspect]
     Indication: PROPHYLAXIS AGAINST TRANSPLANT REJECTION
     Route: 048
     Dates: start: 20061106
  3. PREDNISOLON [Concomitant]
     Indication: IMMUNOSUPPRESSION
     Route: 048
     Dates: start: 20100907
  4. PANTOPRAZOLE [Concomitant]
     Indication: GASTRIC PH DECREASED
     Route: 048
     Dates: start: 20120701
  5. PAMOL [Concomitant]
     Indication: PAIN
     Route: 048
     Dates: start: 20120703
  6. SODIUM BICARBONATE [Concomitant]
     Indication: ACIDOSIS
     Route: 048
     Dates: start: 20120727
  7. DULCOLAX (BISACODYL) [Concomitant]
     Indication: CONSTIPATION
     Dosage: Styrke 10 mg, efter behov
     Route: 048
     Dates: start: 20120630
  8. CLOZAPINE [Concomitant]
     Indication: MENTAL DISORDER
     Route: 048
     Dates: start: 20120828
  9. CLOPIDOGREL [Concomitant]
     Indication: THROMBOSIS PROPHYLAXIS
     Route: 048
     Dates: start: 20120814
  10. EXELON [Concomitant]
     Indication: DEMENTIA
     Route: 062
     Dates: start: 20120916
  11. APOVIT D-VITAMIN [Concomitant]
  12. MULTIVITAMIN [Concomitant]

REACTIONS (8)
  - Pneumocystis jiroveci pneumonia [Recovered/Resolved]
  - Pyrexia [Recovered/Resolved]
  - Fatigue [Not Recovered/Not Resolved]
  - Parkinson^s disease [Not Recovered/Not Resolved]
  - Balance disorder [Not Recovered/Not Resolved]
  - Cognitive disorder [Not Recovered/Not Resolved]
  - Quality of life decreased [Not Recovered/Not Resolved]
  - Asthenia [Not Recovered/Not Resolved]
